FAERS Safety Report 5999144-2 (Version None)
Quarter: 2008Q4

REPORT INFORMATION
  Report Type: 
  Country: None (occurrence: None)
  Receive Date: 20081211
  Receipt Date: 20081126
  Transmission Date: 20090506
  Serious: Yes (Other)
  Sender: FDA-Public Use
  Company Number: KV200800686

PATIENT
  Age: 82 Year
  Sex: Male
  Weight: 71.2 kg

DRUGS (6)
  1. ISOSORBIDE MONONITRATE [Suspect]
     Indication: CARDIAC FAILURE CONGESTIVE
     Dosage: 30 MG, ONE TAB QD, ORAL
     Route: 048
  2. LANOXIN [Concomitant]
  3. COUMADIN [Concomitant]
  4. FUROSEMIDE [Concomitant]
  5. MONOPRIL /00915301/ (FOSINOPRIL) [Concomitant]
  6. COREG [Concomitant]

REACTIONS (7)
  - ANOREXIA [None]
  - BLOOD PRESSURE DECREASED [None]
  - CHRONIC LEUKAEMIA [None]
  - DIZZINESS [None]
  - PRODUCT QUALITY ISSUE [None]
  - WEIGHT DECREASED [None]
  - WHITE BLOOD CELL COUNT INCREASED [None]
